FAERS Safety Report 9556194 (Version 2)
Quarter: 2013Q4

REPORT INFORMATION
  Report Type: Report from Study
  Country: JP (occurrence: JP)
  Receive Date: 20130926
  Receipt Date: 20131126
  Transmission Date: 20140711
  Serious: Yes (Hospitalization)
  Sender: FDA-Public Use
  Company Number: JP-JNJFOC-20130911976

PATIENT
  Age: 85 Year
  Sex: Female
  Weight: 31 kg

DRUGS (21)
  1. SIMPONI [Suspect]
     Indication: RHEUMATOID ARTHRITIS
     Route: 058
     Dates: start: 20130415
  2. SIMPONI [Suspect]
     Indication: RHEUMATOID ARTHRITIS
     Route: 058
     Dates: start: 20130322, end: 20130322
  3. SIMPONI [Suspect]
     Indication: RHEUMATOID ARTHRITIS
     Route: 058
     Dates: start: 20130123, end: 20130123
  4. SIMPONI [Suspect]
     Indication: RHEUMATOID ARTHRITIS
     Route: 058
     Dates: start: 20121226, end: 20121226
  5. SIMPONI [Suspect]
     Indication: RHEUMATOID ARTHRITIS
     Route: 058
     Dates: start: 20121128, end: 20121128
  6. SALAZOSULFAPYRIDINE [Concomitant]
     Indication: RHEUMATOID ARTHRITIS
     Route: 065
  7. MIZORIBINE [Concomitant]
     Indication: RHEUMATOID ARTHRITIS
     Route: 048
  8. TIOPRONIN [Concomitant]
     Indication: RHEUMATOID ARTHRITIS
     Route: 065
  9. MEDROL [Concomitant]
     Indication: RHEUMATOID ARTHRITIS
     Route: 048
  10. CELECOX [Concomitant]
     Indication: RHEUMATOID ARTHRITIS
     Route: 048
  11. OMEPRAL [Concomitant]
     Indication: PROPHYLAXIS
     Route: 065
  12. MUCOSTA [Concomitant]
     Indication: PROPHYLAXIS
     Route: 065
  13. ISCOTIN [Concomitant]
     Indication: PROPHYLAXIS
     Route: 065
  14. FERRUM [Concomitant]
     Indication: IRON DEFICIENCY ANAEMIA
     Route: 048
  15. NORVASC [Concomitant]
     Indication: HYPERTENSION
     Route: 048
  16. NULOTAN [Concomitant]
     Indication: HYPERTENSION
     Route: 048
  17. EDIROL [Concomitant]
     Indication: OSTEOPOROSIS
     Route: 048
  18. BACTRAMIN [Concomitant]
     Indication: PROPHYLAXIS
     Route: 065
  19. RIZE [Concomitant]
     Indication: ANXIETY DISORDER
     Route: 048
  20. AMLODIN OD [Concomitant]
     Indication: HYPERTENSION
     Route: 048
  21. MECOBALAMIN [Concomitant]
     Indication: PROPHYLAXIS
     Route: 065

REACTIONS (2)
  - Femoral neck fracture [Recovering/Resolving]
  - Fall [Recovered/Resolved]
